FAERS Safety Report 8123956 (Version 2)
Quarter: 2013Q2

REPORT INFORMATION
  Report Type: Spontaneous
  Country: US (occurrence: None)
  Receive Date: 20110817
  Receipt Date: 20120817
  Transmission Date: 20140414
  Serious: Yes (Other)
  Sender: FDA-Public Use
  Company Number: 201110683

PATIENT
  Age: 63 Year
  Sex: Female

DRUGS (2)
  1. LIORESAL [Suspect]
     Indication: MUSCLE SPASTICITY
     Route: 037
  2. MORPHINE [Concomitant]

REACTIONS (3)
  - IMPLANT SITE DISCHARGE [None]
  - IMPLANT SITE INFECTION [None]
  - Wound [None]
